FAERS Safety Report 8379256-9 (Version None)
Quarter: 2012Q1

REPORT INFORMATION
  Report Type: 
  Country: None (occurrence: None)
  Receive Date: 20120323
  Receipt Date: 20110506
  Transmission Date: 20120608
  Serious: Yes (Other)
  Sender: FDA-Public Use
  Company Number: 163-21880-11051108

PATIENT
  Age: 62 Year
  Sex: Male

DRUGS (4)
  1. EXJADE [Concomitant]
  2. PROCIRT (ERYTHROPOIETIN) [Concomitant]
  3. REVLIMID [Suspect]
     Indication: MYELODYSPLASTIC SYNDROME
     Dosage: 10 MG, 1 IN 1 D, PO
     Route: 048
     Dates: start: 20110215, end: 20110404
  4. NEUPOGEN (GILGRASTIM) [Concomitant]

REACTIONS (3)
  - NEUTROPHIL COUNT DECREASED [None]
  - NO THERAPEUTIC RESPONSE [None]
  - FATIGUE [None]
